FAERS Safety Report 12650787 (Version 1)
Quarter: 2016Q3

REPORT INFORMATION
  Report Type: Spontaneous
  Country: US (occurrence: US)
  Receive Date: 20160815
  Receipt Date: 20160815
  Transmission Date: 20161109
  Serious: No
  Sender: FDA-Public Use
  Company Number: US-JAZZ-2016-US-004936

PATIENT
  Sex: Male

DRUGS (41)
  1. XYREM [Suspect]
     Active Substance: SODIUM OXYBATE
     Dosage: DOSE ADJUSTMENTS
     Route: 048
  2. XYREM [Suspect]
     Active Substance: SODIUM OXYBATE
     Dosage: 4.5 G, BID
     Route: 048
     Dates: start: 201504
  3. SINGULAIR [Concomitant]
     Active Substance: MONTELUKAST SODIUM
  4. BACTROBAN [Concomitant]
     Active Substance: MUPIROCIN\MUPIROCIN CALCIUM
  5. SYMBICORT [Concomitant]
     Active Substance: BUDESONIDE\FORMOTEROL FUMARATE DIHYDRATE
  6. TRIUMEQ [Concomitant]
     Active Substance: ABACAVIR SULFATE\DOLUTEGRAVIR SODIUM\LAMIVUDINE
  7. XYZAL [Concomitant]
     Active Substance: LEVOCETIRIZINE DIHYDROCHLORIDE
  8. CLARITIN [Concomitant]
     Active Substance: LORATADINE
  9. PATANASE [Concomitant]
     Active Substance: OLOPATADINE HYDROCHLORIDE
  10. NICORETTE [Concomitant]
     Active Substance: NICOTINE
  11. OLANZAPINE. [Concomitant]
     Active Substance: OLANZAPINE
  12. UNDECYLENIC ACID. [Concomitant]
     Active Substance: UNDECYLENIC ACID
  13. MARINOL [Concomitant]
     Active Substance: DRONABINOL
  14. LINZESS [Concomitant]
     Active Substance: LINACLOTIDE
  15. KLONOPIN [Concomitant]
     Active Substance: CLONAZEPAM
  16. SELEGILINE HCL [Concomitant]
     Active Substance: SELEGILINE HYDROCHLORIDE
  17. NAFTIN [Concomitant]
     Active Substance: NAFTIFINE HYDROCHLORIDE
  18. ULORIC [Concomitant]
     Active Substance: FEBUXOSTAT
  19. VERAMYST [Concomitant]
     Active Substance: FLUTICASONE FUROATE
  20. ZOFRAN [Concomitant]
     Active Substance: ONDANSETRON HYDROCHLORIDE
  21. XYREM [Suspect]
     Active Substance: SODIUM OXYBATE
     Dosage: 4.5 G, TID
     Route: 048
     Dates: start: 201206, end: 2013
  22. OXYCODONE HYDROCHLORIDE. [Concomitant]
     Active Substance: OXYCODONE HYDROCHLORIDE
  23. DOCUSATE SODIUM. [Concomitant]
     Active Substance: DOCUSATE SODIUM
  24. RILUTEK [Concomitant]
     Active Substance: RILUZOLE
  25. BREO ELLIPTA [Concomitant]
     Active Substance: FLUTICASONE FUROATE\VILANTEROL TRIFENATATE
  26. HALOPERIDOL. [Concomitant]
     Active Substance: HALOPERIDOL
  27. XYREM [Suspect]
     Active Substance: SODIUM OXYBATE
     Indication: NARCOLEPSY
     Dosage: 2.25 G, BID
     Route: 048
     Dates: start: 201005, end: 201005
  28. ZADITOR [Concomitant]
     Active Substance: KETOTIFEN FUMARATE
  29. EPZICOM [Concomitant]
     Active Substance: ABACAVIR SULFATE\LAMIVUDINE
  30. PROVIGIL [Concomitant]
     Active Substance: MODAFINIL
  31. HIBICLENS [Concomitant]
     Active Substance: CHLORHEXIDINE GLUCONATE
  32. NUCYNTA ER [Concomitant]
     Active Substance: TAPENTADOL HYDROCHLORIDE
  33. VSL#3 [Concomitant]
     Active Substance: PROBIOTICS NOS
  34. ALIGN [Concomitant]
     Active Substance: BIFIDOBACTERIUM LONGUM SUBSP. INFANTIS
  35. LAMISIL [Concomitant]
     Active Substance: TERBINAFINE HYDROCHLORIDE
  36. EMSAM [Concomitant]
     Active Substance: SELEGILINE
  37. BENZTROPINE MESILATE [Concomitant]
     Active Substance: BENZTROPINE MESYLATE
  38. IBUPROFEN. [Concomitant]
     Active Substance: IBUPROFEN
  39. TIVICAY [Concomitant]
     Active Substance: DOLUTEGRAVIR SODIUM
  40. NAPROXEN SODIUM. [Concomitant]
     Active Substance: NAPROXEN SODIUM
  41. NUVIGIL [Concomitant]
     Active Substance: ARMODAFINIL

REACTIONS (2)
  - Hypersensitivity [Unknown]
  - Wrong technique in product usage process [Unknown]
